FAERS Safety Report 17745138 (Version 1)
Quarter: 2020Q2

REPORT INFORMATION
  Report Type: Spontaneous
  Country: FR (occurrence: FR)
  Receive Date: 20200504
  Receipt Date: 20200504
  Transmission Date: 20200714
  Serious: Yes (Hospitalization)
  Sender: FDA-Public Use
  Company Number: FR-ROCHE-2593771

PATIENT
  Age: 47 Year
  Sex: Male

DRUGS (15)
  1. GAZYVARO [Suspect]
     Active Substance: OBINUTUZUMAB
     Indication: B-CELL LYMPHOMA
     Route: 042
     Dates: start: 201907, end: 20191101
  2. CYCLOPHOSPHAMIDE. [Suspect]
     Active Substance: CYCLOPHOSPHAMIDE
     Indication: B-CELL LYMPHOMA
     Route: 065
     Dates: start: 201907, end: 20191101
  3. DOXORUBICIN [Suspect]
     Active Substance: DOXORUBICIN
     Dosage: C1 MAINTENANCE THERAPY
     Route: 065
     Dates: start: 202001
  4. VINCRISTINE [Suspect]
     Active Substance: VINCRISTINE
     Dosage: C2 MAINTENANCE THERAPY
     Route: 065
     Dates: end: 20200313
  5. PREDNISONE. [Suspect]
     Active Substance: PREDNISONE
     Dosage: C2 MAINTENANCE THERAPY
     Route: 065
     Dates: end: 20200313
  6. DOXORUBICIN [Suspect]
     Active Substance: DOXORUBICIN
     Dosage: C2 MAINTENANCE THERAPY
     Route: 065
     Dates: end: 20200313
  7. GAZYVARO [Suspect]
     Active Substance: OBINUTUZUMAB
     Dosage: C2 MAINTENANCE THERAPY
     Route: 065
     Dates: end: 20200313
  8. CYCLOPHOSPHAMIDE. [Suspect]
     Active Substance: CYCLOPHOSPHAMIDE
     Dosage: C1 MAINTENANCE THERAPY
     Route: 065
     Dates: start: 202001
  9. PREDNISONE. [Suspect]
     Active Substance: PREDNISONE
     Indication: B-CELL LYMPHOMA
     Route: 065
     Dates: start: 201907, end: 20191101
  10. CYCLOPHOSPHAMIDE. [Suspect]
     Active Substance: CYCLOPHOSPHAMIDE
     Dosage: C2 MAINTENANCE THERAPY
     Route: 065
     Dates: end: 20200313
  11. VINCRISTINE [Suspect]
     Active Substance: VINCRISTINE
     Dosage: C1 MAINTENANCE THERAPY
     Route: 065
     Dates: start: 202001
  12. GAZYVARO [Suspect]
     Active Substance: OBINUTUZUMAB
     Dosage: C1 MAINTENANCE THERAPY
     Route: 065
     Dates: start: 202001
  13. DOXORUBICIN [Suspect]
     Active Substance: DOXORUBICIN
     Indication: B-CELL LYMPHOMA
     Route: 065
     Dates: start: 201907, end: 20191101
  14. VINCRISTINE [Suspect]
     Active Substance: VINCRISTINE
     Indication: B-CELL LYMPHOMA
     Route: 065
     Dates: start: 201907, end: 20191101
  15. PREDNISONE. [Suspect]
     Active Substance: PREDNISONE
     Dosage: C1 MAINTENANCE THERAPY
     Route: 065
     Dates: start: 202001

REACTIONS (1)
  - COVID-19 [Not Recovered/Not Resolved]

NARRATIVE: CASE EVENT DATE: 20200405
